FAERS Safety Report 18501861 (Version 21)
Quarter: 2022Q3

REPORT INFORMATION
  Report Type: Spontaneous
  Country: CZ (occurrence: CZ)
  Receive Date: 20201113
  Receipt Date: 20220922
  Transmission Date: 20221027
  Serious: Yes (Hospitalization, Other)
  Sender: FDA-Public Use
  Company Number: CZ-BRISTOL-MYERS SQUIBB COMPANY-BMS-2020-094630

PATIENT
  Age: 86 Year
  Sex: Female

DRUGS (64)
  1. ELIQUIS [Interacting]
     Active Substance: APIXABAN
     Indication: Product used for unknown indication
     Route: 048
  2. DONEPEZIL HYDROCHLORIDE [Suspect]
     Active Substance: DONEPEZIL HYDROCHLORIDE
     Indication: Product used for unknown indication
     Route: 065
  3. TELMISARTAN [Suspect]
     Active Substance: TELMISARTAN
     Indication: Hypertension
     Route: 048
  4. PREDNISONE [Interacting]
     Active Substance: PREDNISONE
     Indication: Steroid therapy
     Route: 048
  5. ROSUVASTATIN CALCIUM [Interacting]
     Active Substance: ROSUVASTATIN CALCIUM
     Indication: Product used for unknown indication
     Route: 048
  6. AMIODARONE [Interacting]
     Active Substance: AMIODARONE
     Indication: Atrial fibrillation
     Dosage: 200 MILLIGRAM (DAYS)
     Route: 048
  7. OXAZEPAM [Interacting]
     Active Substance: OXAZEPAM
     Indication: Drug abuse
     Route: 065
  8. SODIUM CHONDROITIN SULFATE [Interacting]
     Active Substance: SODIUM CHONDROITIN SULFATE
     Indication: Rheumatoid arthritis
     Dosage: 800 MILLIGRAM, QD
     Route: 048
  9. SODIUM CHONDROITIN SULFATE [Interacting]
     Active Substance: SODIUM CHONDROITIN SULFATE
     Indication: Constipation
  10. FOLIC ACID [Interacting]
     Active Substance: FOLIC ACID
     Indication: Product used for unknown indication
     Dosage: ONCE A DAY ON MONDAY, WEEKLY
     Route: 048
  11. RAMIPRIL [Suspect]
     Active Substance: RAMIPRIL
     Indication: Product used for unknown indication
     Route: 065
  12. CHONDROITIN SULFATE (BOVINE) [Suspect]
     Active Substance: CHONDROITIN SULFATE (BOVINE)
     Indication: Rheumatoid arthritis
     Route: 065
  13. METAMIZOLE [Interacting]
     Active Substance: METAMIZOLE
     Indication: Post herpetic neuralgia
     Dosage: 500 MILLIGRAM, BID
     Route: 048
     Dates: start: 2015
  14. METAMIZOLE [Interacting]
     Active Substance: METAMIZOLE
     Indication: Hypertension
  15. METAMIZOLE [Interacting]
     Active Substance: METAMIZOLE
     Indication: Neuralgia
  16. ACETAMINOPHEN [Interacting]
     Active Substance: ACETAMINOPHEN
     Indication: Pain
     Route: 048
  17. BISACODYL [Interacting]
     Active Substance: BISACODYL
     Indication: Constipation
     Dosage: 10-20 GTT IN THE EVENING
     Route: 065
  18. PREDNISONE [Interacting]
     Active Substance: PREDNISONE
     Indication: Steroid therapy
     Route: 048
  19. ACETAMINOPHEN\CAFFEINE\PROPYPHENAZONE [Interacting]
     Active Substance: ACETAMINOPHEN\CAFFEINE\PROPYPHENAZONE
     Indication: Hypertension
     Route: 065
  20. IBUPROFEN [Suspect]
     Active Substance: IBUPROFEN
     Indication: Pain
     Route: 065
  21. ZOLPIDEM TARTRATE [Suspect]
     Active Substance: ZOLPIDEM TARTRATE
     Indication: Drug abuse
     Dosage: OVERUSED
     Route: 065
  22. HYDROCHLOROTHIAZIDE\TELMISARTAN [Suspect]
     Active Substance: HYDROCHLOROTHIAZIDE\TELMISARTAN
     Indication: Product used for unknown indication
     Dosage: 80 MG/12.5 MG, ONE DOSAGE FORM DAILY
     Route: 048
  23. HYDROCHLOROTHIAZIDE\TELMISARTAN [Suspect]
     Active Substance: HYDROCHLOROTHIAZIDE\TELMISARTAN
     Dosage: 80/12.5 MG
     Route: 048
  24. PANTOPRAZOLE [Suspect]
     Active Substance: PANTOPRAZOLE
     Indication: Nausea
     Dosage: 10 MILLIGRAM
     Route: 048
  25. PANTOPRAZOLE [Suspect]
     Active Substance: PANTOPRAZOLE
     Dosage: 20 MILLIGRAM
     Route: 048
  26. ROSUVASTATIN [Suspect]
     Active Substance: ROSUVASTATIN
     Indication: Product used for unknown indication
     Dosage: 20 MILLIGRAM
     Route: 065
  27. PREGABALIN [Suspect]
     Active Substance: PREGABALIN
     Indication: Post herpetic neuralgia
     Dosage: UNK
     Route: 065
  28. PREGABALIN [Suspect]
     Active Substance: PREGABALIN
     Route: 065
  29. PREGABALIN [Suspect]
     Active Substance: PREGABALIN
     Route: 048
  30. METOPROLOL TARTRATE [Suspect]
     Active Substance: METOPROLOL TARTRATE
     Indication: Product used for unknown indication
     Route: 065
  31. ALPRAZOLAM [Suspect]
     Active Substance: ALPRAZOLAM
     Indication: Product used for unknown indication
     Route: 065
  32. METOPROLOL SUCCINATE [Suspect]
     Active Substance: METOPROLOL SUCCINATE
     Indication: Hypertension
     Dosage: 25 MILLIGRAM, QD
     Route: 048
  33. TRAZODONE [Suspect]
     Active Substance: TRAZODONE HYDROCHLORIDE
     Indication: Product used for unknown indication
     Route: 065
  34. NICOFURANOSE [Suspect]
     Active Substance: NICOFURANOSE
     Indication: Encephalopathy
     Route: 048
  35. ZOLPIDEM [Suspect]
     Active Substance: ZOLPIDEM TARTRATE
     Indication: Drug abuse
     Route: 065
  36. FENTANYL CITRATE [Suspect]
     Active Substance: FENTANYL CITRATE
     Indication: Product used for unknown indication
     Route: 065
  37. CALCIUM\CHOLECALCIFEROL [Suspect]
     Active Substance: CALCIUM\CHOLECALCIFEROL
     Indication: Calcium deficiency
     Route: 048
  38. MELOXICAM [Suspect]
     Active Substance: MELOXICAM
     Indication: Pain
     Dosage: 15 MG (WEEKS)
     Route: 048
     Dates: start: 2015
  39. MELOXICAM [Suspect]
     Active Substance: MELOXICAM
     Indication: Post herpetic neuralgia
  40. AMLODIPINE BESYLATE [Suspect]
     Active Substance: AMLODIPINE BESYLATE
     Indication: Hypertension
     Dosage: 5 MILLIGRAM, QD
     Route: 048
  41. METOPROLOL [Suspect]
     Active Substance: METOPROLOL
     Indication: Hypertension
     Route: 048
  42. LEVOTHYROXINE [Suspect]
     Active Substance: LEVOTHYROXINE
     Indication: Autoimmune thyroiditis
     Dosage: 100 MICROGRAM
     Route: 048
  43. FENTANYL [Suspect]
     Active Substance: FENTANYL
     Indication: Post herpetic neuralgia
     Dosage: 25 MICROGRAM, Q72H
     Route: 062
     Dates: start: 2015
  44. FENTANYL [Suspect]
     Active Substance: FENTANYL
     Indication: Pain
  45. MELOXICAM [Interacting]
     Active Substance: MELOXICAM
     Indication: Post herpetic neuralgia
     Dosage: 1 DOSAGE FORM, QWK
     Route: 048
     Dates: start: 2015
  46. MELOXICAM [Interacting]
     Active Substance: MELOXICAM
     Indication: Pain
  47. CAPTOPRIL [Interacting]
     Active Substance: CAPTOPRIL
     Indication: Hypertension
     Route: 065
  48. GUAIFENESIN [Interacting]
     Active Substance: GUAIFENESIN
     Indication: Product used for unknown indication
     Route: 065
  49. OMEPRAZOLE [Interacting]
     Active Substance: OMEPRAZOLE
     Indication: Product used for unknown indication
     Dosage: UNK
     Route: 065
  50. MAGNESIUM ASPARTATE\POTASSIUM ASPARTATE [Interacting]
     Active Substance: MAGNESIUM ASPARTATE\POTASSIUM ASPARTATE
     Indication: Product used for unknown indication
     Route: 048
  51. ZOLPIDEM TARTRATE [Interacting]
     Active Substance: ZOLPIDEM TARTRATE
     Indication: Drug abuse
     Dosage: OVERUSED
     Route: 065
  52. TRAMADOL [Interacting]
     Active Substance: TRAMADOL
     Indication: Drug abuse
     Dosage: OVERUSED
     Route: 048
  53. TELMISARTAN [Interacting]
     Active Substance: TELMISARTAN
     Indication: Hypertension
     Dosage: 1 DOSAGE FORM (80/12.5 MG)
     Route: 065
  54. EUTHYROX [Interacting]
     Active Substance: LEVOTHYROXINE SODIUM
     Indication: Autoimmune thyroiditis
     Dosage: 100 MICROGRAM, QD
     Route: 048
  55. EUTHYROX [Interacting]
     Active Substance: LEVOTHYROXINE SODIUM
     Indication: Hypothyroidism
     Dosage: DOSE REDUCED
     Route: 048
  56. CONTROLOC [Interacting]
     Active Substance: PANTOPRAZOLE SODIUM
     Indication: Nausea
     Dosage: GASTRO-RESISTANT TABLET
     Route: 048
  57. CALCIUM\CHOLECALCIFEROL [Interacting]
     Active Substance: CALCIUM\CHOLECALCIFEROL
     Indication: Calcium deficiency
     Dosage: 1 DOSAGE FORM, QD
     Route: 048
  58. AMLODIPINE BESYLATE [Interacting]
     Active Substance: AMLODIPINE BESYLATE
     Indication: Hypertension
     Dosage: 5 MILLIGRAM, QD
     Route: 048
  59. METHOTREXATE SODIUM [Interacting]
     Active Substance: METHOTREXATE SODIUM
     Indication: Rheumatoid arthritis
     Dosage: 10 MILLIGRAM, ONCE A WEEK ON SUNDAY
     Route: 048
     Dates: start: 2010
  60. PANADOL [Interacting]
     Active Substance: ACETAMINOPHEN
     Indication: Pain
     Dosage: 750 MG DAILY (1.5 TABLETS 3-4 TIMES A DAY)
     Route: 048
     Dates: start: 2015
  61. NOVALGIN (METAMIZOLE SODIUM) [Interacting]
     Active Substance: METAMIZOLE SODIUM
     Indication: Post herpetic neuralgia
     Route: 065
  62. NOVALGIN (METAMIZOLE SODIUM) [Interacting]
     Active Substance: METAMIZOLE SODIUM
     Indication: Hypertension
  63. SODIUM PICOSULFATE [Interacting]
     Active Substance: SODIUM PICOSULFATE
     Indication: Constipation
     Dosage: 10 TO 20 GTT IN THE EVENING
     Route: 065
  64. CORDARONE [Interacting]
     Active Substance: AMIODARONE HYDROCHLORIDE
     Indication: Atrial fibrillation
     Dosage: 200 MILLIGRAM, QD
     Route: 048

REACTIONS (42)
  - Sleep disorder [Recovering/Resolving]
  - Dizziness [Recovered/Resolved]
  - Hypertension [Recovering/Resolving]
  - Fracture [Recovered/Resolved]
  - Foreign body [Recovered/Resolved]
  - Listless [Recovering/Resolving]
  - Pelvic fracture [Recovered/Resolved]
  - Poor quality sleep [Recovering/Resolving]
  - Fall [Recovering/Resolving]
  - Prescription drug used without a prescription [Unknown]
  - Hypoacusis [Recovered/Resolved]
  - Restlessness [Recovered/Resolved]
  - Nausea [Recovered/Resolved]
  - Vertigo [Recovered/Resolved]
  - Head discomfort [Recovered/Resolved]
  - Cognitive disorder [Recovered/Resolved]
  - Discomfort [Recovered/Resolved]
  - General physical health deterioration [Recovering/Resolving]
  - Dehydration [Recovered/Resolved]
  - Loss of personal independence in daily activities [Recovered/Resolved]
  - Anxiety [Recovered/Resolved]
  - Delirium [Recovered/Resolved]
  - Confusional state [Recovered/Resolved]
  - Urinary retention [Recovered/Resolved]
  - Oxygen saturation decreased [Recovered/Resolved]
  - Hyponatraemia [Recovered/Resolved]
  - Liver function test increased [Recovered/Resolved]
  - Atrial fibrillation [Recovered/Resolved]
  - Apathy [Recovered/Resolved]
  - Hypokalaemia [Recovered/Resolved]
  - Condition aggravated [Recovered/Resolved]
  - Bedridden [Recovered/Resolved]
  - Immobile [Recovered/Resolved]
  - Encephalopathy [Recovering/Resolving]
  - Drug interaction [Recovered/Resolved]
  - Mobility decreased [Recovered/Resolved]
  - Incorrect dose administered [Unknown]
  - Mood swings [Recovered/Resolved]
  - Reduced facial expression [Recovered/Resolved]
  - Affect lability [Recovered/Resolved]
  - Contusion [Recovered/Resolved]
  - Overdose [Recovered/Resolved]

NARRATIVE: CASE EVENT DATE: 20180101
